FAERS Safety Report 6216872-4 (Version None)
Quarter: 2009Q2

REPORT INFORMATION
  Report Type: 
  Country: None (occurrence: None)
  Receive Date: 20090603
  Receipt Date: 20090603
  Transmission Date: 20091009
  Serious: Yes (Other)
  Sender: FDA-Public Use
  Company Number: None

PATIENT
  Sex: Female
  Weight: 58.0604 kg

DRUGS (2)
  1. LAMOTRIGINE [Suspect]
     Dosage: 100 MG 1-QAM AND 2-QHS 047
     Dates: start: 20080801
  2. LAMOTRIGINE [Suspect]
     Dosage: 100 MG 1-QAM AND 2-QHS 047
     Dates: start: 20080901

REACTIONS (4)
  - AGGRESSION [None]
  - AGITATION [None]
  - INSOMNIA [None]
  - SELF INJURIOUS BEHAVIOUR [None]
